FAERS Safety Report 20476904 (Version 1)
Quarter: 2022Q1

REPORT INFORMATION
  Report Type: Spontaneous
  Country: US (occurrence: US)
  Receive Date: 20220215
  Receipt Date: 20220215
  Transmission Date: 20220423
  Serious: No
  Sender: FDA-Public Use
  Company Number: US-SA-SAC20220210000300

PATIENT
  Sex: Male

DRUGS (1)
  1. DUPIXENT [Suspect]
     Active Substance: DUPILUMAB
     Indication: Product used for unknown indication
     Dosage: 2 ML UNDER THE SKIN FREQ- EVERY 2 WEEKS
     Route: 058
     Dates: start: 20211016

REACTIONS (2)
  - Skin disorder [Unknown]
  - Condition aggravated [Unknown]
